FAERS Safety Report 4516513-8 (Version None)
Quarter: 2005Q1

REPORT INFORMATION
  Report Type: 
  Country: None (occurrence: None)
  Receive Date: 20041027
  Receipt Date: 20040721
  Transmission Date: 20050727
  Serious: No
  Sender: FDA-Public Use
  Company Number: US084452

PATIENT
  Sex: 0

DRUGS (3)
  1. SENSIPAR [Suspect]
     Indication: HYPERPARATHYROIDISM SECONDARY
     Dates: start: 20040717
  2. PARICALCITOL [Concomitant]
  3. SEVELAMER HCL [Concomitant]

REACTIONS (2)
  - BLOOD PHOSPHORUS DECREASED [None]
  - DECREASED APPETITE [None]
